FAERS Safety Report 13847302 (Version 4)
Quarter: 2017Q4

REPORT INFORMATION
  Report Type: Spontaneous
  Country: FR (occurrence: FR)
  Receive Date: 20170808
  Receipt Date: 20171020
  Transmission Date: 20180320
  Serious: Yes (Life-Threatening, Hospitalization)
  Sender: FDA-Public Use
  Company Number: PHHY2017FR116269

PATIENT
  Age: 50 Year
  Sex: Female

DRUGS (6)
  1. EXFORGE [Suspect]
     Active Substance: AMLODIPINE BESYLATE\VALSARTAN
     Indication: HYPERTENSION
     Dosage: 1 DF, UNK
     Route: 048
     Dates: start: 20170526, end: 20170702
  2. ATENOLOL. [Suspect]
     Active Substance: ATENOLOL
     Indication: PRODUCT USED FOR UNKNOWN INDICATION
     Dosage: 100 MG, UNK
     Route: 048
     Dates: start: 20170526, end: 20170710
  3. LERCAN [Suspect]
     Active Substance: LERCANIDIPINE
     Indication: HYPERTENSION
     Dosage: 10 MG, UNK
     Route: 048
     Dates: start: 20170526, end: 20170702
  4. LOXEN (NICARDIPINE HYDROCHLORIDE) [Suspect]
     Active Substance: NICARDIPINE HYDROCHLORIDE
     Indication: HYPERTENSION
     Dosage: UNK
     Route: 048
     Dates: start: 20170512, end: 20170526
  5. LASILIX [Suspect]
     Active Substance: FUROSEMIDE
     Indication: HYPERTENSION
     Dosage: 40 MG, UNK
     Route: 048
     Dates: start: 20170526, end: 20170608
  6. FLUDEX (INDAPAMIDE) [Suspect]
     Active Substance: INDAPAMIDE
     Indication: HYPERTENSION
     Dosage: 1.5 MG, UNK
     Route: 048
     Dates: start: 20170702, end: 20170720

REACTIONS (1)
  - Drug reaction with eosinophilia and systemic symptoms [Recovering/Resolving]

NARRATIVE: CASE EVENT DATE: 20170710
